FAERS Safety Report 6788835-1 (Version None)
Quarter: 2010Q2

REPORT INFORMATION
  Report Type: 
  Country: None (occurrence: None)
  Receive Date: 20100623
  Receipt Date: 20080527
  Transmission Date: 20101027
  Serious: No
  Sender: FDA-Public Use
  Company Number: US-PFIZER INC-2008045105

PATIENT
  Sex: Male

DRUGS (2)
  1. DOSTINEX [Suspect]
     Indication: PITUITARY TUMOUR BENIGN
  2. CABERGOLINE [Suspect]
     Indication: PITUITARY TUMOUR BENIGN

REACTIONS (2)
  - BLOOD PROLACTIN INCREASED [None]
  - BLOOD TESTOSTERONE DECREASED [None]
